FAERS Safety Report 25676732 (Version 1)
Quarter: 2025Q3

REPORT INFORMATION
  Report Type: Spontaneous
  Country: US (occurrence: None)
  Receive Date: 20250812
  Receipt Date: 20250812
  Transmission Date: 20251021
  Serious: Yes (Other)
  Sender: FDA-CTU
  Company Number: None

PATIENT
  Age: 80 Year
  Sex: Male
  Weight: 121.95 kg

DRUGS (2)
  1. OZEMPIC [Suspect]
     Active Substance: SEMAGLUTIDE
     Dates: end: 20250812
  2. OZEMPIC [Concomitant]
     Active Substance: SEMAGLUTIDE
     Dates: end: 20250812

REACTIONS (1)
  - Allodynia [None]

NARRATIVE: CASE EVENT DATE: 20250807
